APPROVED DRUG PRODUCT: METHADONE HYDROCHLORIDE
Active Ingredient: METHADONE HYDROCHLORIDE
Strength: 40MG
Dosage Form/Route: TABLET, FOR SUSPENSION;ORAL
Application: A075082 | Product #001 | TE Code: AA
Applicant: VISTAPHARM LLC
Approved: Mar 25, 1998 | RLD: No | RS: No | Type: RX